FAERS Safety Report 10458359 (Version 2)
Quarter: 2014Q3

REPORT INFORMATION
  Report Type: Spontaneous
  Country: IT (occurrence: IT)
  Receive Date: 20140917
  Receipt Date: 20140917
  Transmission Date: 20150326
  Serious: Yes (Other)
  Sender: FDA-Public Use
  Company Number: IT-JNJFOC-20140818697

PATIENT
  Age: 65 Year
  Sex: Female

DRUGS (3)
  1. IBUPROFEN (UNSPECIFIED) [Suspect]
     Active Substance: IBUPROFEN
     Route: 048
  2. KETOPROFEN. [Suspect]
     Active Substance: KETOPROFEN
     Indication: DIVERTICULITIS
     Route: 048
     Dates: start: 20130601, end: 20131207
  3. IBUPROFEN (UNSPECIFIED) [Suspect]
     Active Substance: IBUPROFEN
     Indication: DIVERTICULITIS
     Route: 048
     Dates: start: 20130601, end: 20131207

REACTIONS (3)
  - Off label use [Unknown]
  - Haematochezia [Recovered/Resolved]
  - Drug abuse [Unknown]

NARRATIVE: CASE EVENT DATE: 20131207
